FAERS Safety Report 6012711-5 (Version None)
Quarter: 2008Q4

REPORT INFORMATION
  Report Type: 
  Country: None (occurrence: None)
  Receive Date: 20081217
  Receipt Date: 20081203
  Transmission Date: 20090506
  Serious: Yes (Hospitalization)
  Sender: FDA-Public Use
  Company Number: 1000003136

PATIENT
  Age: 88 Year
  Sex: Male

DRUGS (8)
  1. CITALOPRAM HYDROBROMIDE [Suspect]
     Indication: DEPRESSION
     Dosage: 20 MG (20 MG, 1 IN1 D), ORAL
     Route: 048
     Dates: start: 20080906, end: 20080916
  2. KARDEGIC (POWDER) [Suspect]
     Indication: STENT PLACEMENT
     Dosage: 75 MG (75 MG, 1 IN 1 D), ORAL
     Route: 048
     Dates: start: 19950101, end: 20080919
  3. CARDENSIEL [Concomitant]
  4. LASILIX [Concomitant]
  5. NITRODERM [Concomitant]
  6. PLAVIX [Concomitant]
  7. LYRICA [Concomitant]
  8. NEURONTIN [Concomitant]

REACTIONS (11)
  - ANOREXIA [None]
  - COLONIC PSEUDO-OBSTRUCTION [None]
  - DEPRESSION [None]
  - DIARRHOEA [None]
  - FALL [None]
  - GOUT [None]
  - NECROTISING OESOPHAGITIS [None]
  - NOSOCOMIAL INFECTION [None]
  - RENAL FAILURE ACUTE [None]
  - RHABDOMYOLYSIS [None]
  - SUBILEUS [None]
